FAERS Safety Report 15364079 (Version 1)
Quarter: 2018Q3

REPORT INFORMATION
  Report Type: Spontaneous
  Country: US (occurrence: US)
  Receive Date: 20180908
  Receipt Date: 20180908
  Transmission Date: 20181010
  Serious: No
  Sender: FDA-Public Use
  Company Number: US-JNJFOC-20180832574

PATIENT
  Age: 84 Year
  Sex: Female
  Weight: 57.15 kg

DRUGS (2)
  1. XARELTO [Suspect]
     Active Substance: RIVAROXABAN
     Indication: ATRIAL FIBRILLATION
     Route: 048
  2. XARELTO [Suspect]
     Active Substance: RIVAROXABAN
     Indication: CEREBROVASCULAR ACCIDENT PROPHYLAXIS
     Route: 048

REACTIONS (4)
  - Inappropriate schedule of drug administration [Unknown]
  - Dizziness [Unknown]
  - Hypotension [Unknown]
  - Product label issue [Unknown]

NARRATIVE: CASE EVENT DATE: 20180822
